FAERS Safety Report 15005633 (Version 1)
Quarter: 2018Q2

REPORT INFORMATION
  Report Type: Spontaneous
  Country: US (occurrence: US)
  Receive Date: 20180525
  Receipt Date: 20180525
  Transmission Date: 20180711
  Serious: Yes (Other)
  Sender: FDA-Public Use
  Company Number: None

PATIENT
  Age: 68 Year
  Sex: Male
  Weight: 87.3 kg

DRUGS (3)
  1. SPIRIVA RESPIMAT [Suspect]
     Active Substance: TIOTROPIUM BROMIDE
     Indication: CHRONIC OBSTRUCTIVE PULMONARY DISEASE
     Dosage: ?          OTHER STRENGTH:MCG;QUANTITY:2 SPRAY(S);?
     Route: 055
     Dates: start: 20170301, end: 20180524
  2. ALBUTEROL. [Concomitant]
     Active Substance: ALBUTEROL
  3. SIMBOCORT [Concomitant]

REACTIONS (5)
  - IIIrd nerve paralysis [None]
  - Vision blurred [None]
  - Cerebrovascular accident [None]
  - Eye pain [None]
  - Apraxia [None]

NARRATIVE: CASE EVENT DATE: 20180406
